FAERS Safety Report 6243003-7 (Version None)
Quarter: 2009Q2

REPORT INFORMATION
  Report Type: 
  Country: None (occurrence: None)
  Receive Date: 20090624
  Receipt Date: 20090617
  Transmission Date: 20091009
  Serious: Yes (Hospitalization)
  Sender: FDA-Public Use
  Company Number: ES-PFIZER INC-2009228658

PATIENT
  Age: 56 Year

DRUGS (1)
  1. SUTENT [Suspect]
     Indication: RENAL CANCER
     Dosage: UNK
     Route: 048
     Dates: start: 20071101, end: 20071113

REACTIONS (3)
  - DIARRHOEA [None]
  - HEPATITIS [None]
  - HYPERTENSION [None]
